FAERS Safety Report 6415068-0 (Version None)
Quarter: 2009Q4

REPORT INFORMATION
  Report Type: 
  Country: None (occurrence: None)
  Receive Date: 20091021
  Receipt Date: 20091007
  Transmission Date: 20100525
  Serious: Yes (Hospitalization)
  Sender: FDA-Public Use
  Company Number: 2009AL006484

PATIENT
  Age: 47 Year
  Sex: Male

DRUGS (6)
  1. FAMOTIDINE [Suspect]
  2. MORPHINE [Concomitant]
  3. CEFOXITIN [Concomitant]
  4. FENTANYL-100 [Concomitant]
  5. PROPOFOL [Concomitant]
  6. VECURONIUM BROMIDE [Concomitant]

REACTIONS (4)
  - ALANINE AMINOTRANSFERASE INCREASED [None]
  - ASPARTATE AMINOTRANSFERASE INCREASED [None]
  - BLOOD BILIRUBIN INCREASED [None]
  - INTERNATIONAL NORMALISED RATIO INCREASED [None]
